FAERS Safety Report 14566458 (Version 1)
Quarter: 2018Q1

REPORT INFORMATION
  Report Type: Report from Study
  Country: US (occurrence: US)
  Receive Date: 20180223
  Receipt Date: 20180223
  Transmission Date: 20180509
  Serious: Yes (Other)
  Sender: FDA-Public Use
  Company Number: PHEH2018US005789

PATIENT
  Sex: Male

DRUGS (1)
  1. ENTRESTO [Suspect]
     Active Substance: SACUBITRIL\VALSARTAN
     Indication: PRODUCT USED FOR UNKNOWN INDICATION
     Dosage: 1 DF(SACUBITRIL 97 MG/VALSARTAN 103 MG), UNK
     Route: 048

REACTIONS (4)
  - Dyspnoea [Unknown]
  - Vomiting [Unknown]
  - Oesophageal stenosis [Unknown]
  - Dysphagia [Unknown]
